FAERS Safety Report 7564112-6 (Version None)
Quarter: 2011Q2

REPORT INFORMATION
  Report Type: 
  Country: None (occurrence: None)
  Receive Date: 20110622
  Receipt Date: 20110620
  Transmission Date: 20111010
  Serious: Yes (Other)
  Sender: FDA-Public Use
  Company Number: GR-PFIZER INC-2011136563

PATIENT
  Age: 35 Year
  Sex: Male

DRUGS (1)
  1. VARENICLINE TARTRATE [Suspect]
     Indication: SMOKING CESSATION THERAPY
     Dosage: UNK
     Route: 048
     Dates: start: 20110616

REACTIONS (4)
  - COUGH [None]
  - HAEMOPTYSIS [None]
  - EAR DISCOMFORT [None]
  - NASOPHARYNGITIS [None]
